APPROVED DRUG PRODUCT: GEMMILY
Active Ingredient: ETHINYL ESTRADIOL; NORETHINDRONE ACETATE
Strength: 0.02MG;1MG
Dosage Form/Route: CAPSULE;ORAL
Application: A213317 | Product #001 | TE Code: AB
Applicant: XIROMED PHARMA ESPANA SL
Approved: Nov 9, 2020 | RLD: No | RS: No | Type: RX